FAERS Safety Report 10237635 (Version 1)
Quarter: 2014Q2

REPORT INFORMATION
  Report Type: Spontaneous
  Country: US (occurrence: US)
  Receive Date: 20140616
  Receipt Date: 20140616
  Transmission Date: 20141212
  Serious: Yes (Other)
  Sender: FDA-Public Use
  Company Number: US-AMGEN-USASP2014044128

PATIENT
  Age: 56 Year
  Sex: Male

DRUGS (1)
  1. ENBREL [Suspect]
     Indication: PSORIATIC ARTHROPATHY
     Dosage: UNK
     Route: 065
     Dates: start: 2000, end: 2013

REACTIONS (5)
  - Joint arthroplasty [Unknown]
  - Temporomandibular joint syndrome [Unknown]
  - Spinal cord oedema [Unknown]
  - Joint swelling [Unknown]
  - Tendon disorder [Unknown]
